FAERS Safety Report 18366655 (Version 1)
Quarter: 2020Q4

REPORT INFORMATION
  Report Type: Spontaneous
  Country: US (occurrence: US)
  Receive Date: 20201009
  Receipt Date: 20201009
  Transmission Date: 20210114
  Serious: No
  Sender: FDA-Public Use
  Company Number: US-AMNEAL PHARMACEUTICALS-2020-AMRX-00722

PATIENT

DRUGS (1)
  1. HYDROCODONE AND ACETAMINOPHEN [Suspect]
     Active Substance: ACETAMINOPHEN\HYDROCODONE
     Indication: PAIN
     Dosage: 10 MILLIGRAM, UNK
     Route: 065

REACTIONS (5)
  - Somnolence [Unknown]
  - Therapeutic product effect incomplete [Unknown]
  - Tinnitus [Unknown]
  - Therapeutic product effect variable [Unknown]
  - Headache [Unknown]
